FAERS Safety Report 5607863-2 (Version None)
Quarter: 2008Q1

REPORT INFORMATION
  Report Type: 
  Country: None (occurrence: None)
  Receive Date: 20080130
  Receipt Date: 20071102
  Transmission Date: 20080703
  Serious: Yes (Hospitalization, Other)
  Sender: FDA-Public Use
  Company Number: US-BAYER-200716876GDS

PATIENT
  Age: 39 Year
  Sex: Male

DRUGS (2)
  1. SORAFENIB [Suspect]
     Indication: METASTATIC RENAL CELL CARCINOMA
     Dosage: TOTAL DAILY DOSE: 800 MG
     Route: 048
     Dates: start: 20060301
  2. SORAFENIB [Suspect]
     Dosage: AS USED: 200/400 MG
     Route: 048

REACTIONS (1)
  - HYPERPLASIA [None]
